FAERS Safety Report 7789052-9 (Version None)
Quarter: 2011Q3

REPORT INFORMATION
  Report Type: 
  Country: None (occurrence: None)
  Receive Date: 20110930
  Receipt Date: 20110922
  Transmission Date: 20111222
  Serious: Yes (Death, Other)
  Sender: FDA-Public Use
  Company Number: US-PFIZER INC-2010102550

PATIENT
  Sex: Male
  Weight: 88.89 kg

DRUGS (7)
  1. CODEINE [Suspect]
     Dosage: UNK
  2. OXYMORPHONE [Suspect]
     Dosage: UNK
  3. MORPHINE SULFATE [Suspect]
     Dosage: UNK
  4. METHADONE HCL [Suspect]
     Indication: DRUG ABUSE
     Dosage: UNK
     Dates: start: 20100202
  5. ALPRAZOLAM [Suspect]
     Indication: DRUG ABUSE
     Dosage: UNK
     Dates: start: 20100202
  6. HEROIN [Suspect]
     Indication: SUBSTANCE ABUSE
     Dosage: UNK
     Dates: start: 20100202
  7. OXYCODONE HCL [Suspect]
     Indication: DRUG ABUSE
     Dosage: UNK
     Dates: start: 20100202

REACTIONS (4)
  - MULTIPLE DRUG OVERDOSE [None]
  - SUBSTANCE ABUSE [None]
  - SOMNOLENCE [None]
  - DRUG DEPENDENCE [None]
